FAERS Safety Report 8565446-9 (Version None)
Quarter: 2012Q3

REPORT INFORMATION
  Report Type: 
  Country: None (occurrence: None)
  Receive Date: 20120803
  Receipt Date: 20120730
  Transmission Date: 20120928
  Serious: Yes (Hospitalization, Other)
  Sender: FDA-Public Use
  Company Number: US-PFIZER INC-2012184609

PATIENT
  Sex: Female
  Weight: 61 kg

DRUGS (8)
  1. LANTUS [Concomitant]
     Indication: DIABETES MELLITUS
     Dosage: UNK
  2. PRILOSEC [Concomitant]
     Indication: GASTROOESOPHAGEAL REFLUX DISEASE
  3. HUMALOG [Concomitant]
     Indication: DIABETES MELLITUS
     Dosage: UNK
  4. LYRICA [Suspect]
     Indication: BURNING SENSATION
  5. PRILOSEC [Concomitant]
     Indication: HIATUS HERNIA
     Dosage: UNK
  6. ASPIRIN [Concomitant]
     Indication: HYPERTENSION
     Dosage: UNK, 1X/DAY
  7. LYRICA [Suspect]
     Indication: NEUROPATHY PERIPHERAL
     Dosage: 150 MG, 2X/DAY
     Route: 048
     Dates: start: 20100101
  8. PRILOSEC [Concomitant]
     Indication: GASTRIC DISORDER

REACTIONS (4)
  - BLOOD POTASSIUM INCREASED [None]
  - BLOOD SODIUM DECREASED [None]
  - BLOOD SODIUM ABNORMAL [None]
  - CEREBROVASCULAR ACCIDENT [None]
